FAERS Safety Report 21194460 (Version 1)
Quarter: 2022Q3

REPORT INFORMATION
  Report Type: Spontaneous
  Country: US (occurrence: US)
  Receive Date: 20220810
  Receipt Date: 20220810
  Transmission Date: 20221027
  Serious: Yes (Other)
  Sender: FDA-Public Use
  Company Number: US-TEVA-2022-US-2062737

PATIENT
  Sex: Female

DRUGS (1)
  1. ETHINYL ESTRADIOL [Suspect]
     Active Substance: ETHINYL ESTRADIOL
     Indication: Contraception
     Dosage: FORM OF ADMIN: VAGINAL RING
     Route: 067

REACTIONS (2)
  - Suicidal ideation [Unknown]
  - Therapeutic product effect incomplete [Unknown]
